FAERS Safety Report 8446533-2 (Version None)
Quarter: 2012Q2

REPORT INFORMATION
  Report Type: 
  Country: None (occurrence: None)
  Receive Date: 20120618
  Receipt Date: 20120613
  Transmission Date: 20120825
  Serious: Yes (Hospitalization, Other)
  Sender: FDA-Public Use
  Company Number: US-MERCK-1205USA00404

PATIENT
  Age: 84 Year
  Sex: Female
  Weight: 65 kg

DRUGS (3)
  1. AMLODIPINE [Concomitant]
     Route: 065
  2. ASPIRIN [Concomitant]
     Route: 065
  3. HYZAAR [Suspect]
     Indication: HYPERTENSION
     Route: 048
     Dates: start: 20100101, end: 20100101

REACTIONS (6)
  - HYPOKALAEMIA [None]
  - SYNCOPE [None]
  - LOSS OF CONSCIOUSNESS [None]
  - FALL [None]
  - DIZZINESS [None]
  - MUSCULOSKELETAL CHEST PAIN [None]
